FAERS Safety Report 5854492-1 (Version None)
Quarter: 2008Q3

REPORT INFORMATION
  Report Type: 
  Country: None (occurrence: None)
  Receive Date: 20080822
  Receipt Date: 20070730
  Transmission Date: 20090109
  Serious: No
  Sender: FDA-Public Use
  Company Number: US-ABBOTT-07P-163-0376156-00

PATIENT
  Sex: Female
  Weight: 55.388 kg

DRUGS (6)
  1. SYNTHROID [Suspect]
     Indication: HYPOTHYROIDISM
     Route: 048
     Dates: start: 20060101, end: 20070729
  2. SYNTHROID [Suspect]
     Route: 048
     Dates: start: 20070729
  3. SYNTHROID [Suspect]
     Route: 048
  4. ACEBUTOLOL HYDROCHLORIDE [Concomitant]
     Indication: MITRAL VALVE PROLAPSE
     Route: 048
  5. ACETYLSALICYLIC ACID SRT [Concomitant]
     Indication: DRUG USE FOR UNKNOWN INDICATION
     Route: 048
  6. MULTI-VITAMIN [Concomitant]
     Indication: DRUG USE FOR UNKNOWN INDICATION
     Route: 048

REACTIONS (2)
  - ALOPECIA [None]
  - THYROID FUNCTION TEST ABNORMAL [None]
